FAERS Safety Report 5623508-X (Version None)
Quarter: 2008Q1

REPORT INFORMATION
  Report Type: 
  Country: None (occurrence: None)
  Receive Date: 20080212
  Receipt Date: 20080131
  Transmission Date: 20080703
  Serious: Yes (Death)
  Sender: FDA-Public Use
  Company Number: TR-ELI_LILLY_AND_COMPANY-TR200802000083

PATIENT
  Age: 70 Year
  Sex: Female

DRUGS (2)
  1. HUMALOG MIX 75/25 [Suspect]
     Dosage: 22 UNITS/MORNING AND EVENING
     Route: 058
     Dates: start: 20071207
  2. MIXTARD HUMAN 70/30 [Concomitant]
     Dosage: UNK, UNKNOWN

REACTIONS (1)
  - CARDIAC FAILURE [None]
